FAERS Safety Report 14998336 (Version 2)
Quarter: 2018Q3

REPORT INFORMATION
  Report Type: Spontaneous
  Country: SK (occurrence: SK)
  Receive Date: 20180611
  Receipt Date: 20180808
  Transmission Date: 20181010
  Serious: Yes (Other)
  Sender: FDA-Public Use
  Company Number: SK-EMD SERONO-9030330

PATIENT
  Sex: Female

DRUGS (1)
  1. REBIF [Suspect]
     Active Substance: INTERFERON BETA-1A
     Indication: RELAPSING-REMITTING MULTIPLE SCLEROSIS

REACTIONS (9)
  - Feeling abnormal [Unknown]
  - Skin disorder [Unknown]
  - Acquired epidermolysis bullosa [Unknown]
  - Hypoaesthesia [Unknown]
  - Bulbar palsy [Unknown]
  - Dysarthria [Unknown]
  - Ataxia [Unknown]
  - Extensor plantar response [Unknown]
  - Mobility decreased [Unknown]
